FAERS Safety Report 7396925-8 (Version None)
Quarter: 2011Q1

REPORT INFORMATION
  Report Type: 
  Country: None (occurrence: None)
  Receive Date: 20110331
  Receipt Date: 20110331
  Transmission Date: 20110831
  Serious: Yes (Hospitalization, Disabling, Other)
  Sender: FDA-Public Use
  Company Number: None

PATIENT
  Age: 60 Year
  Sex: Female
  Weight: 85.2762 kg

DRUGS (5)
  1. FISH OIL [Concomitant]
  2. VITAMIN B-12 [Concomitant]
  3. VITAMIN D [Concomitant]
  4. ANASTROZOLE [Suspect]
     Indication: PROPHYLAXIS
     Dosage: 1 TABLET DAILY PO
     Route: 048
     Dates: start: 20110101, end: 20110101
  5. ANASTROZOLE [Suspect]
     Indication: BREAST CANCER
     Dosage: 1 TABLET DAILY PO
     Route: 048
     Dates: start: 20110101, end: 20110101

REACTIONS (4)
  - RASH GENERALISED [None]
  - EXFOLIATIVE RASH [None]
  - RASH PRURITIC [None]
  - SCAB [None]
